FAERS Safety Report 21359162 (Version 2)
Quarter: 2023Q1

REPORT INFORMATION
  Report Type: Spontaneous
  Country: JO (occurrence: JO)
  Receive Date: 20220921
  Receipt Date: 20230110
  Transmission Date: 20230417
  Serious: Yes (Hospitalization, Other)
  Sender: FDA-Public Use
  Company Number: JO-AMGEN-JORSP2022161668

PATIENT

DRUGS (6)
  1. NEUPOGEN [Suspect]
     Active Substance: FILGRASTIM
     Indication: Prophylaxis
     Dosage: 5 MICROGRAM/KILOGRAM, AFTER CHEMO (DAILY 24 HOURS) (07 TO 10 DAYS)
     Route: 065
  2. ADRIAMYCIN [Concomitant]
     Active Substance: DOXORUBICIN HYDROCHLORIDE
     Indication: Neoplasm malignant
     Dosage: UNK
  3. BLEOMYCIN SULFATE [Concomitant]
     Active Substance: BLEOMYCIN SULFATE
     Indication: Neoplasm malignant
     Dosage: UNK
  4. VINBLASTINE SULFATE [Concomitant]
     Active Substance: VINBLASTINE SULFATE
     Indication: Neoplasm malignant
     Dosage: UNK
  5. DACARBAZINE [Concomitant]
     Active Substance: DACARBAZINE
     Indication: Neoplasm malignant
     Dosage: UNK
  6. DOCETAXEL [Concomitant]
     Active Substance: DOCETAXEL
     Indication: Breast cancer
     Dosage: UNK

REACTIONS (2)
  - Febrile neutropenia [Unknown]
  - Bone pain [Unknown]
